FAERS Safety Report 8836444 (Version 1)
Quarter: 2012Q4

REPORT INFORMATION
  Report Type: 
  Country: US (occurrence: US)
  Receive Date: 20121011
  Receipt Date: 20121011
  Transmission Date: 20130627
  Serious: No
  Sender: FDA-Public Use
  Company Number: US-ASTRAZENECA-2012SE73970

PATIENT
  Age: 69 Year
  Sex: Female
  Weight: 67.1 kg

DRUGS (3)
  1. ENTOCORT EC [Suspect]
     Indication: CROHN^S DISEASE
     Route: 048
  2. LORAZEPAM (PRN) [Concomitant]
  3. ESTROGEN PATCH [Concomitant]

REACTIONS (4)
  - Abdominal pain [Not Recovered/Not Resolved]
  - Bowel movement irregularity [Not Recovered/Not Resolved]
  - Nasopharyngitis [Unknown]
  - Fatigue [Unknown]
